FAERS Safety Report 23058495 (Version 1)
Quarter: 2023Q4

REPORT INFORMATION
  Report Type: Spontaneous
  Country: US (occurrence: None)
  Receive Date: 20231011
  Receipt Date: 20231011
  Transmission Date: 20240109
  Serious: No
  Sender: FDA-Public Use
  Company Number: None

PATIENT
  Age: 70 Year
  Sex: Female
  Weight: 75.2 kg

DRUGS (1)
  1. COLUMVI [Suspect]
     Active Substance: GLOFITAMAB-GXBM
     Indication: Diffuse large B-cell lymphoma
     Route: 042
     Dates: start: 20231009, end: 20231009

REACTIONS (11)
  - Cytokine release syndrome [None]
  - Neurotoxicity [None]
  - Blood pressure abnormal [None]
  - Heart rate increased [None]
  - Oxygen saturation decreased [None]
  - Speech disorder [None]
  - Chills [None]
  - Disorientation [None]
  - Grip strength decreased [None]
  - Romberg test positive [None]
  - Immune effector cell-associated neurotoxicity syndrome [None]
